FAERS Safety Report 24918437 (Version 1)
Quarter: 2025Q1

REPORT INFORMATION
  Report Type: Spontaneous
  Country: CA (occurrence: CA)
  Receive Date: 20250203
  Receipt Date: 20250203
  Transmission Date: 20250409
  Serious: Yes (Other)
  Sender: GE HEALTHCARE
  Company Number: CA-GE HEALTHCARE-2025CSU001139

PATIENT
  Age: 80 Year
  Sex: Female

DRUGS (2)
  1. OMNIPAQUE [Suspect]
     Active Substance: IOHEXOL
     Indication: Transcatheter aortic valve implantation
     Route: 050
  2. OMNIPAQUE [Suspect]
     Active Substance: IOHEXOL
     Indication: Scan with contrast

REACTIONS (5)
  - Sneezing [Unknown]
  - Chest discomfort [Unknown]
  - Swelling of eyelid [Unknown]
  - Urticaria [Unknown]
  - Erythema [Unknown]
